FAERS Safety Report 14187907 (Version 1)
Quarter: 2017Q4

REPORT INFORMATION
  Report Type: Spontaneous
  Country: US (occurrence: None)
  Receive Date: 20171114
  Receipt Date: 20171114
  Transmission Date: 20180321
  Serious: Yes (Other)
  Sender: FDA-Public Use
  Company Number: None

PATIENT
  Age: 62 Year
  Sex: Female
  Weight: 134.3 kg

DRUGS (1)
  1. DAPTOMYCIN. [Suspect]
     Active Substance: DAPTOMYCIN
     Indication: URINARY TRACT INFECTION
     Dosage: 750MG Q24H IV PUSH
     Route: 042
     Dates: start: 20171028

REACTIONS (7)
  - Chills [None]
  - Mental disorder [None]
  - Cyanosis [None]
  - Diaphragmatic disorder [None]
  - Acute pulmonary oedema [None]
  - Atrial fibrillation [None]
  - Nausea [None]

NARRATIVE: CASE EVENT DATE: 20171028
